FAERS Safety Report 7161246-5 (Version None)
Quarter: 2010Q4

REPORT INFORMATION
  Report Type: 
  Country: None (occurrence: None)
  Receive Date: 20101210
  Receipt Date: 20101210
  Transmission Date: 20110411
  Serious: Yes (Death)
  Sender: FDA-Public Use
  Company Number: None

PATIENT
  Age: 14 Month
  Sex: Male
  Weight: 11.3399 kg

DRUGS (2)
  1. HYLAND'S TEETHING TABLETS 250 TABLET HYLAND'S / P+S LABORATORIES [Suspect]
     Indication: DISCOMFORT
     Dosage: AS DIRECTED, 2-3 TABS EVERY 4 HOURS PO
     Route: 048
     Dates: start: 20091201, end: 20100415
  2. HYLAND'S TEETHING TABLETS 250 TABLET HYLAND'S / P+S LABORATORIES [Suspect]
     Indication: TEETHING
     Dosage: AS DIRECTED, 2-3 TABS EVERY 4 HOURS PO
     Route: 048
     Dates: start: 20091201, end: 20100415

REACTIONS (5)
  - CIRCULATORY COLLAPSE [None]
  - CONVULSION [None]
  - DRUG TOXICITY [None]
  - NERVOUS SYSTEM DISORDER [None]
  - PRODUCT QUALITY ISSUE [None]
